FAERS Safety Report 10861145 (Version 1)
Quarter: 2015Q1

REPORT INFORMATION
  Report Type: Spontaneous
  Country: US (occurrence: US)
  Receive Date: 20150224
  Receipt Date: 20150224
  Transmission Date: 20150721
  Serious: No
  Sender: FDA-Public Use
  Company Number: US-009507513-1501USA011452

PATIENT
  Sex: Female
  Weight: 74.38 kg

DRUGS (1)
  1. IMPLANON [Suspect]
     Active Substance: ETONOGESTREL
     Indication: CONTRACEPTION
     Dosage: 1 ROD FOR 3 YEARS, IN THE LEFT ARM
     Route: 059
     Dates: start: 201012

REACTIONS (3)
  - Incorrect drug administration duration [Unknown]
  - Cyst [Unknown]
  - Migraine [Unknown]

NARRATIVE: CASE EVENT DATE: 2012
